FAERS Safety Report 4558728-9 (Version None)
Quarter: 2005Q1

REPORT INFORMATION
  Report Type: 
  Country: None (occurrence: None)
  Receive Date: 20050119
  Receipt Date: 20041112
  Transmission Date: 20050727
  Serious: Yes (Other)
  Sender: FDA-Public Use
  Company Number: 2004096992

PATIENT
  Age: 49 Year
  Sex: Male
  Weight: 120.2032 kg

DRUGS (12)
  1. CELEBREX [Suspect]
     Indication: OSTEOARTHRITIS
  2. CELEBREX [Suspect]
     Indication: RHEUMATOID ARTHRITIS
  3. PANTOPRAZOLE (PANTOPRAZOLE) [Concomitant]
  4. DILTIAZEM HYDROCHLORIDE [Concomitant]
  5. ALL OTHER THERAPEUTIC PRODUCTS (ALL OTHER THERAPEUTIC PRODUCTS) [Concomitant]
  6. SALBUTAMOL (SALBUTAMOL) [Concomitant]
  7. VENLAFAXINE HCL [Concomitant]
  8. METFORMIN HYDROCHLORIDE/ROSIGLITAZONE (METFORMIN HYDROCHLORIDE, ROSIGL [Concomitant]
  9. METOPROLOL TARTRATE [Concomitant]
  10. LORAZEPAM [Concomitant]
  11. ASPIRIN [Concomitant]
  12. INDOMETHACIN [Concomitant]

REACTIONS (6)
  - DEPRESSION [None]
  - DIABETES MELLITUS [None]
  - HEPATITIS C [None]
  - STOMACH DISCOMFORT [None]
  - THERAPEUTIC RESPONSE DECREASED [None]
  - WEIGHT INCREASED [None]
